FAERS Safety Report 25228429 (Version 3)
Quarter: 2025Q2

REPORT INFORMATION
  Report Type: Report from Study
  Country: US (occurrence: US)
  Receive Date: 20250423
  Receipt Date: 20250528
  Transmission Date: 20250716
  Serious: Yes (Hospitalization, Other)
  Sender: TAKEDA
  Company Number: US-TAKEDA-2021TUS076531

PATIENT
  Age: 61 Year
  Sex: Female

DRUGS (22)
  1. BRIGATINIB [Suspect]
     Active Substance: BRIGATINIB
     Indication: Lung neoplasm malignant
     Dosage: 120 MILLIGRAM, QD
     Dates: start: 20211007
  2. BRIGATINIB [Suspect]
     Active Substance: BRIGATINIB
     Dosage: 120 MILLIGRAM, QD
     Dates: start: 20221116
  3. BRIGATINIB [Suspect]
     Active Substance: BRIGATINIB
     Dosage: 90 MILLIGRAM, QD
  4. BRIGATINIB [Suspect]
     Active Substance: BRIGATINIB
     Dosage: 30 MILLIGRAM, QD
  5. BRIGATINIB [Suspect]
     Active Substance: BRIGATINIB
     Dosage: 120 MILLIGRAM, QD
  6. BRIGATINIB [Suspect]
     Active Substance: BRIGATINIB
     Dosage: 90 MILLIGRAM, QD
  7. BRIGATINIB [Suspect]
     Active Substance: BRIGATINIB
     Dosage: 30 MILLIGRAM, QD
  8. BRIGATINIB [Suspect]
     Active Substance: BRIGATINIB
     Dosage: 120 MILLIGRAM, QD
  9. BRIGATINIB [Suspect]
     Active Substance: BRIGATINIB
     Dosage: 120 MILLIGRAM, QD
  10. ATORVASTATIN CALCIUM [Concomitant]
     Active Substance: ATORVASTATIN CALCIUM
  11. SIMVASTATIN [Concomitant]
     Active Substance: SIMVASTATIN
  12. AMLODIPINE BESYLATE [Concomitant]
     Active Substance: AMLODIPINE BESYLATE
  13. IBUPROFEN [Concomitant]
     Active Substance: IBUPROFEN
  14. LORATADINE [Concomitant]
     Active Substance: LORATADINE
  15. MAGNESIUM OXIDE [Concomitant]
     Active Substance: MAGNESIUM OXIDE
  16. OMEGA 3 [Concomitant]
     Active Substance: CAPSAICIN
  17. POTASSIUM CHLORIDE [Concomitant]
     Active Substance: POTASSIUM CHLORIDE
  18. VITAMIN C [Concomitant]
     Active Substance: ASCORBIC ACID
  19. AMLODIPINE [Concomitant]
     Active Substance: AMLODIPINE BESYLATE
  20. DECADRON [Concomitant]
     Active Substance: DEXAMETHASONE
  21. KEPPRA [Concomitant]
     Active Substance: LEVETIRACETAM
  22. MEMANTINE [Concomitant]
     Active Substance: MEMANTINE

REACTIONS (15)
  - Lung neoplasm malignant [Unknown]
  - Metastases to central nervous system [Not Recovered/Not Resolved]
  - Vomiting [Unknown]
  - Diarrhoea [Unknown]
  - Speech disorder [Not Recovered/Not Resolved]
  - Dry throat [Unknown]
  - Product dose omission issue [Unknown]
  - Emotional disorder [Unknown]
  - COVID-19 [Recovering/Resolving]
  - Thirst [Unknown]
  - Dry mouth [Unknown]
  - Rash [Unknown]
  - Arthralgia [Unknown]
  - Fatigue [Not Recovered/Not Resolved]
  - Headache [Unknown]

NARRATIVE: CASE EVENT DATE: 20221101
